FAERS Safety Report 5110738-9 (Version None)
Quarter: 2006Q3

REPORT INFORMATION
  Report Type: 
  Country: None (occurrence: None)
  Receive Date: 20060919
  Receipt Date: 20060911
  Transmission Date: 20061208
  Serious: Yes (Hospitalization)
  Sender: FDA-Public Use
  Company Number: 23191

PATIENT
  Age: 61 Year
  Sex: Female
  Weight: 87.0906 kg

DRUGS (6)
  1. NICOTINE [Suspect]
     Indication: SMOKING CESSATION THERAPY
     Dosage: 2 MG/12 LOZ Q24 HRS, OR
     Route: 048
     Dates: start: 20060401, end: 20060907
  2. COMMIT LOZENGES, 12 MG [Suspect]
     Indication: SMOKING CESSATION THERAPY
     Dosage: 4 MG/12 LOZ Q24 HRS, OR
     Route: 048
     Dates: start: 20050801, end: 20060401
  3. UNSPECIFIED BLOOD PRESSURE MED [Concomitant]
  4. UNSPECIFIED ANTIHYPERGLYCEMIC MED [Concomitant]
  5. UNSPECIFIED THYROID MED [Concomitant]
  6. UNSPECIFIED PAIN AND NERVE MEDICATIONS [Concomitant]

REACTIONS (8)
  - ASTHENIA [None]
  - BLOOD PRESSURE INCREASED [None]
  - DIARRHOEA [None]
  - DRUG DEPENDENCE [None]
  - DRUG WITHDRAWAL SYNDROME [None]
  - HYPERGLYCAEMIA [None]
  - PAIN [None]
  - PALPITATIONS [None]
